FAERS Safety Report 11820373 (Version 2)
Quarter: 2017Q3

REPORT INFORMATION
  Report Type: Spontaneous
  Country: FR (occurrence: FR)
  Receive Date: 20151210
  Receipt Date: 20170720
  Transmission Date: 20171127
  Serious: Yes (Hospitalization, Other)
  Sender: FDA-Public Use
  Company Number: FR-ACCORD-035393

PATIENT
  Age: 80 Year
  Sex: Male

DRUGS (5)
  1. METHOTREXATE. [Suspect]
     Active Substance: METHOTREXATE
     Indication: SQUAMOUS CELL CARCINOMA OF THE HYPOPHARYNX
     Dosage: WEEKLY METHOTREXATE THERAPY AT 40 MG/M2 (80 MG PER TREATMENT) THEN REDUCED TO 40 MG EVERY 15 DAYS
     Dates: start: 2013
  2. BISOPROLOL [Concomitant]
     Active Substance: BISOPROLOL
  3. OMEPRAZOLE. [Interacting]
     Active Substance: OMEPRAZOLE
     Indication: PRODUCT USED FOR UNKNOWN INDICATION
  4. SIMVASTATIN. [Concomitant]
     Active Substance: SIMVASTATIN
  5. CANDESARTAN. [Concomitant]
     Active Substance: CANDESARTAN

REACTIONS (6)
  - Drug interaction [Recovered/Resolved]
  - Skin lesion [Recovered/Resolved]
  - Pancytopenia [Recovered/Resolved]
  - Mucosal inflammation [Recovered/Resolved]
  - Mucosal ulceration [Recovered/Resolved]
  - Creatinine renal clearance decreased [Recovered/Resolved]
